FAERS Safety Report 8915326 (Version 1)
Quarter: 2012Q4

REPORT INFORMATION
  Report Type: 
  Country: US (occurrence: US)
  Receive Date: 20121116
  Receipt Date: 20121116
  Transmission Date: 20130627
  Serious: Yes (Hospitalization, Other)
  Sender: FDA-Public Use
  Company Number: US-FRI-1000039119

PATIENT
  Age: 79 Year
  Sex: Male
  Weight: 78.4 kg

DRUGS (6)
  1. NAMENDA [Suspect]
     Indication: COGNITIVE DISORDER
     Dosage: 5 mg
     Route: 048
     Dates: start: 20120404, end: 20120410
  2. NAMENDA [Suspect]
     Dosage: 10 mg
     Route: 048
     Dates: start: 20120411, end: 20120417
  3. NAMENDA [Suspect]
     Dosage: 5 mg in AM, 10 mg in PM
     Route: 048
     Dates: start: 20120418, end: 20120424
  4. NAMENDA [Suspect]
     Indication: COGNITIVE DISORDER
     Dosage: 20 mg
     Route: 048
     Dates: start: 20120425, end: 20120820
  5. LISINOPRIL [Concomitant]
     Indication: HYPERTENSION
     Dates: start: 20110110
  6. CENTRUM MULTIVITAMIN [Concomitant]

REACTIONS (5)
  - Sinusitis [Unknown]
  - Renal failure [Unknown]
  - Influenza like illness [Unknown]
  - Decreased appetite [Unknown]
  - Off label use [Recovered/Resolved]
